FAERS Safety Report 15334092 (Version 5)
Quarter: 2019Q1

REPORT INFORMATION
  Report Type: Spontaneous
  Country: GR (occurrence: GR)
  Receive Date: 20180830
  Receipt Date: 20190203
  Transmission Date: 20190417
  Serious: Yes (Hospitalization)
  Sender: FDA-Public Use
  Company Number: PHHY2018GR078677

PATIENT
  Age: 61 Year
  Sex: Female

DRUGS (3)
  1. RITUXIMAB. [Suspect]
     Active Substance: RITUXIMAB
     Indication: PRODUCT USED FOR UNKNOWN INDICATION
     Dosage: UNK
     Route: 065
  2. ATORVASTATIN [Suspect]
     Active Substance: ATORVASTATIN
     Indication: DYSLIPIDAEMIA
     Dosage: 20 MG, UNK
     Route: 065
  3. GAMMA-GLOBULIN [Suspect]
     Active Substance: IMMUNE GLOBULIN NOS
     Indication: IMMUNE-MEDIATED NECROTISING MYOPATHY
     Dosage: UNK
     Route: 065

REACTIONS (6)
  - Immune-mediated necrotising myopathy [Recovering/Resolving]
  - Dysphagia [Recovering/Resolving]
  - Pain in extremity [Recovering/Resolving]
  - Condition aggravated [Recovering/Resolving]
  - Dysphonia [Recovering/Resolving]
  - Muscular weakness [Recovering/Resolving]
